FAERS Safety Report 6043512-X (Version None)
Quarter: 2009Q1

REPORT INFORMATION
  Report Type: 
  Country: None (occurrence: None)
  Receive Date: 20090114
  Receipt Date: 20090114
  Transmission Date: 20090719
  Serious: Yes (Hospitalization)
  Sender: FDA-Public Use
  Company Number: None

PATIENT
  Age: 45 Year
  Sex: Female
  Weight: 65 kg

DRUGS (6)
  1. VALACYCLOVIR [Suspect]
     Indication: ENCEPHALITIS HERPES
     Dosage: 1000 MG BID PO
     Route: 048
     Dates: start: 20080902, end: 20080903
  2. ACYCLOVIR [Suspect]
     Dosage: 1000 MG/630 MG/ 300 Q8H IV BOLUS
     Route: 040
     Dates: start: 20080723, end: 20080902
  3. PREGABALIN [Concomitant]
  4. FAMOTIDINE [Concomitant]
  5. HYDROCORTISONE OINTMENT [Concomitant]
  6. PREDNISONE [Concomitant]

REACTIONS (4)
  - EOSINOPHILIA [None]
  - ERYTHEMA MULTIFORME [None]
  - LEUKOCYTOSIS [None]
  - PYREXIA [None]
